FAERS Safety Report 8504286-3 (Version None)
Quarter: 2012Q3

REPORT INFORMATION
  Report Type: 
  Country: None (occurrence: None)
  Receive Date: 20120711
  Receipt Date: 20120613
  Transmission Date: 20120928
  Serious: No
  Sender: FDA-Public Use
  Company Number: US-BAYER-2012-059731

PATIENT

DRUGS (5)
  1. ALEVE (CAPLET) [Suspect]
     Indication: ANALGESIC THERAPY
     Dosage: UNK
     Route: 048
  2. ACETAMINOPHEN [Concomitant]
  3. ASPIRIN [Suspect]
     Indication: ANALGESIC THERAPY
     Dosage: UNK
     Route: 048
  4. IBUPROFEN [Concomitant]
  5. ICY HOT [Concomitant]

REACTIONS (1)
  - PAIN [None]
